FAERS Safety Report 5040407-5 (Version None)
Quarter: 2006Q2

REPORT INFORMATION
  Report Type: 
  Country: None (occurrence: None)
  Receive Date: 20060630
  Receipt Date: 20060525
  Transmission Date: 20061013
  Serious: Yes (Other)
  Sender: FDA-Public Use
  Company Number: GB-GLAXOSMITHKLINE-B0425512A

PATIENT
  Age: 59 Year
  Sex: Male
  Weight: 71 kg

DRUGS (5)
  1. AVANDAMET [Suspect]
     Route: 048
     Dates: start: 20060103, end: 20060123
  2. GLICLAZIDE [Concomitant]
     Dosage: 80MG PER DAY
     Route: 048
  3. ATENOLOL [Concomitant]
     Dosage: 50MG PER DAY
     Route: 048
  4. ATORVASTATIN CALCIUM [Concomitant]
     Dosage: 20MG PER DAY
     Route: 048
  5. ASPIRIN [Concomitant]
     Dosage: 75MG PER DAY
     Route: 048

REACTIONS (3)
  - ABDOMINAL DISCOMFORT [None]
  - DIZZINESS [None]
  - MACULAR OEDEMA [None]
